FAERS Safety Report 14361233 (Version 9)
Quarter: 2018Q4

REPORT INFORMATION
  Report Type: Spontaneous
  Country: US (occurrence: US)
  Receive Date: 20180108
  Receipt Date: 20181010
  Transmission Date: 20190204
  Serious: Yes (Hospitalization, Other)
  Sender: FDA-Public Use
  Company Number: US-BRISTOL-MYERS SQUIBB COMPANY-BMS-2017-119761

PATIENT
  Sex: Female
  Weight: 73.93 kg

DRUGS (2)
  1. ORENCIA [Suspect]
     Active Substance: ABATACEPT
     Indication: RHEUMATOID ARTHRITIS
     Dosage: 125 MG, QWK
     Route: 058
     Dates: start: 201608
  2. ORENCIA [Suspect]
     Active Substance: ABATACEPT
     Indication: SENILE OSTEOPOROSIS
     Route: 065

REACTIONS (9)
  - Blister [Unknown]
  - Epistaxis [Unknown]
  - Pyrexia [Unknown]
  - Influenza [Unknown]
  - Infection [Unknown]
  - Pneumonia [Unknown]
  - Ill-defined disorder [Unknown]
  - Malaise [Unknown]
  - Arthritis [Unknown]
